FAERS Safety Report 5148152-2 (Version None)
Quarter: 2006Q4

REPORT INFORMATION
  Report Type: 
  Country: None (occurrence: None)
  Receive Date: 20061110
  Receipt Date: 20060901
  Transmission Date: 20070319
  Serious: Yes (Disabling)
  Sender: FDA-Public Use
  Company Number: 2006SE04776

PATIENT
  Age: 766 Month
  Sex: Male

DRUGS (5)
  1. CASODEX [Suspect]
     Indication: PROSTATE CANCER
     Route: 048
     Dates: start: 20031001
  2. SELOZOK [Concomitant]
     Route: 048
  3. PRAVACHOL [Concomitant]
     Route: 048
     Dates: start: 20020617
  4. OMNIC [Concomitant]
     Indication: PROSTATIC DISORDER
     Route: 048
     Dates: start: 20030815
  5. ASPIRIN [Concomitant]
     Route: 048

REACTIONS (3)
  - AMYOTROPHIC LATERAL SCLEROSIS [None]
  - DYSARTHRIA [None]
  - SPEECH DISORDER [None]
